FAERS Safety Report 6839293-X (Version None)
Quarter: 2010Q3

REPORT INFORMATION
  Report Type: 
  Country: None (occurrence: None)
  Receive Date: 20100708
  Receipt Date: 20100625
  Transmission Date: 20110219
  Serious: Yes (Other)
  Sender: FDA-Public Use
  Company Number: 7008192

PATIENT
  Age: 43 Year
  Sex: Female
  Weight: 76 kg

DRUGS (6)
  1. REBIF [Suspect]
     Indication: RELAPSING-REMITTING MULTIPLE SCLEROSIS
     Dosage: 44 MCG;
     Dates: start: 20100302
  2. AMITRIPTYLINE HYDROCHLORIDE [Concomitant]
  3. BACLOFEN [Concomitant]
  4. LANSOPRAZOLE [Concomitant]
  5. BUTRANS (BUPRENORPHINE) [Concomitant]
  6. COLPERMIN (MENTHA X PIPERITA OIL) [Concomitant]

REACTIONS (4)
  - ALANINE AMINOTRANSFERASE INCREASED [None]
  - GAMMA-GLUTAMYLTRANSFERASE INCREASED [None]
  - GLOBULINS INCREASED [None]
  - TYPE 2 DIABETES MELLITUS [None]
